FAERS Safety Report 21501758 (Version 1)
Quarter: 2022Q4

REPORT INFORMATION
  Report Type: Spontaneous
  Country: IT (occurrence: None)
  Receive Date: 20221025
  Receipt Date: 20221025
  Transmission Date: 20230113
  Serious: Yes (Hospitalization, Other)
  Sender: FDA-Public Use
  Company Number: None

PATIENT
  Age: 72 Year
  Sex: Male
  Weight: 555 kg

DRUGS (1)
  1. AMIODARONE [Suspect]
     Active Substance: AMIODARONE
     Indication: Atrial fibrillation
     Dosage: 2 AMPOULES OF 50 MG/ML EACH IN GLUCOSE SOLUTION
     Route: 041
     Dates: start: 20220929, end: 20220929

REACTIONS (4)
  - Urinary incontinence [Recovering/Resolving]
  - Loss of consciousness [Recovering/Resolving]
  - Blood pressure increased [Recovering/Resolving]
  - Heart rate decreased [Recovering/Resolving]

NARRATIVE: CASE EVENT DATE: 20220929
